FAERS Safety Report 7121223-7 (Version None)
Quarter: 2010Q4

REPORT INFORMATION
  Report Type: 
  Country: None (occurrence: None)
  Receive Date: 20101124
  Receipt Date: 20101119
  Transmission Date: 20110411
  Serious: Yes (Death)
  Sender: FDA-Public Use
  Company Number: PHHY2010US77946

PATIENT
  Sex: Female

DRUGS (9)
  1. FEMARA [Suspect]
     Indication: BREAST CANCER METASTATIC
     Dosage: 2.5 MG, QD
     Route: 048
     Dates: start: 20101004
  2. LIPITOR [Concomitant]
     Dosage: 10 MG, UNK
     Route: 048
  3. FELODIPINE [Concomitant]
     Dosage: 5 MG, UNK
     Route: 048
  4. LISINOPRIL [Concomitant]
     Dosage: 10 MG, UNK
     Route: 048
  5. ZOLOFT [Concomitant]
     Dosage: 50 MG, UNK
     Route: 048
  6. ASA [Concomitant]
     Dosage: 81 MG, UNK
     Route: 048
  7. SINEMET [Concomitant]
     Dosage: 25/100MG
     Route: 048
  8. VICODIN [Concomitant]
     Indication: PAIN
     Dosage: UNK
     Route: 048
  9. MEGACE [Concomitant]
     Dosage: 40MG/ML 10ML DAILY

REACTIONS (3)
  - GENERAL PHYSICAL HEALTH DETERIORATION [None]
  - HYPOPHAGIA [None]
  - MALIGNANT NEOPLASM PROGRESSION [None]
